FAERS Safety Report 9907131 (Version 1)
Quarter: 2014Q1

REPORT INFORMATION
  Report Type: Spontaneous
  Country: FI (occurrence: FI)
  Receive Date: 20140218
  Receipt Date: 20140218
  Transmission Date: 20141002
  Serious: Yes (Hospitalization, Other)
  Sender: FDA-Public Use
  Company Number: FI-PFIZER INC-2014045070

PATIENT
  Sex: Male

DRUGS (6)
  1. CARDACE [Suspect]
     Dosage: UNK
     Route: 065
  2. CARVEDILOL [Suspect]
     Dosage: UNK
     Route: 065
  3. FURESIS [Suspect]
     Route: 065
  4. CHONDROITIN SULFATE SODIUM [Suspect]
     Dosage: UNK
     Route: 065
  5. PREDNISOLON [Suspect]
     Dosage: UNK
     Route: 065
  6. DIFORMIN RETARD [Suspect]
     Dosage: UNK
     Route: 065

REACTIONS (10)
  - Pneumonia [Unknown]
  - Diabetes mellitus [Unknown]
  - Myocardial infarction [Unknown]
  - Cardiac failure [Unknown]
  - Chronic obstructive pulmonary disease [Unknown]
  - Fluid retention [Unknown]
  - Blood glucose increased [Unknown]
  - Diarrhoea [Unknown]
  - Abdominal discomfort [Unknown]
  - Overdose [Unknown]
